FAERS Safety Report 8760544 (Version 2)
Quarter: 2012Q4

REPORT INFORMATION
  Report Type: Spontaneous
  Country: US (occurrence: None)
  Receive Date: 20120822
  Receipt Date: 20121005
  Transmission Date: 20130627
  Serious: Yes (Other)
  Sender: FDA-Public Use
  Company Number: ALK-2012-000049

PATIENT
  Age: 55 Year
  Sex: Male

DRUGS (1)
  1. VIVITROL [Suspect]
     Indication: ALCOHOL DEPENDENCE SYNDROME
     Route: 030
     Dates: start: 20110722, end: 20120606

REACTIONS (1)
  - Hernia [None]
